FAERS Safety Report 11299208 (Version 1)
Quarter: 2015Q3

REPORT INFORMATION
  Report Type: Spontaneous
  Country: US (occurrence: US)
  Receive Date: 20150722
  Receipt Date: 20150722
  Transmission Date: 20151125
  Serious: Yes (Death)
  Sender: FDA-Public Use
  Company Number: US-ELI_LILLY_AND_COMPANY-US201208004484

PATIENT
  Age: 55 Year
  Sex: Female

DRUGS (2)
  1. EFFIENT [Suspect]
     Active Substance: PRASUGREL HYDROCHLORIDE
     Dosage: 10 MG, UNKNOWN
     Route: 065
     Dates: start: 20120808
  2. EFFIENT [Suspect]
     Active Substance: PRASUGREL HYDROCHLORIDE
     Dosage: 60 MG, UNKNOWN
     Route: 065

REACTIONS (1)
  - Cerebral haemorrhage [Fatal]
